FAERS Safety Report 15573422 (Version 1)
Quarter: 2018Q4

REPORT INFORMATION
  Report Type: Spontaneous
  Country: FR (occurrence: FR)
  Receive Date: 20181101
  Receipt Date: 20181101
  Transmission Date: 20190205
  Serious: Yes (Death, Hospitalization)
  Sender: FDA-Public Use
  Company Number: FR-TEVA-2018-FR-970527

PATIENT
  Age: 80 Year
  Sex: Female

DRUGS (2)
  1. AMOXICILLINE [Suspect]
     Active Substance: AMOXICILLIN
     Indication: MENINGITIS
     Route: 042
     Dates: start: 20170205, end: 20170211
  2. CEFTRIAXONE BASE [Suspect]
     Active Substance: CEFTRIAXONE
     Indication: MENINGITIS
     Route: 042
     Dates: start: 20170203, end: 20170204

REACTIONS (1)
  - Seizure [Not Recovered/Not Resolved]

NARRATIVE: CASE EVENT DATE: 20170206
